FAERS Safety Report 7793069-8 (Version None)
Quarter: 2011Q3

REPORT INFORMATION
  Report Type: 
  Country: None (occurrence: None)
  Receive Date: 20110930
  Receipt Date: 20110930
  Transmission Date: 20111222
  Serious: Yes (Life-Threatening)
  Sender: FDA-Public Use
  Company Number: None

PATIENT
  Age: 73 Year
  Sex: Female
  Weight: 90.7194 kg

DRUGS (1)
  1. METFORMIN HCL [Suspect]
     Indication: DIABETES MELLITUS
     Dosage: 500 MG 1 DAILY (DURATION: 3 YRS + 3 MO.)

REACTIONS (7)
  - GASTRIC DISORDER [None]
  - FEELING ABNORMAL [None]
  - GAIT DISTURBANCE [None]
  - ARTHRALGIA [None]
  - VITAMIN B12 DECREASED [None]
  - SOMNOLENCE [None]
  - ASTHENIA [None]
